FAERS Safety Report 6571211-4 (Version None)
Quarter: 2010Q1

REPORT INFORMATION
  Report Type: 
  Country: None (occurrence: None)
  Receive Date: 20100129
  Receipt Date: 20100122
  Transmission Date: 20100710
  Serious: Yes (Hospitalization)
  Sender: FDA-Public Use
  Company Number: 487270

PATIENT
  Age: 58 Year
  Sex: Male

DRUGS (6)
  1. GENTAMICIN [Suspect]
     Indication: ANTIBIOTIC PROPHYLAXIS
     Dosage: 80 MG, UNKNOWN, UNKNOWN
  2. PROMETHAZINE [Suspect]
     Indication: PROCEDURAL NAUSEA
     Dosage: 12.5 MG, UNKNOWN, UNKNOWN
  3. KETOROLAC TROMETHAMINE [Suspect]
     Indication: PROCEDURAL PAIN
     Dosage: 60 MG, UNKNOWN, UNKNOWN
  4. CIPROFLOXACIN [Suspect]
     Indication: ANTIBIOTIC PROPHYLAXIS
     Dosage: 500 MG, UNKNOWN, UNKNOWN
  5. AMPICILLIN [Suspect]
     Indication: ANTIBIOTIC PROPHYLAXIS
     Dosage: 2 Q, UNKNOWN, UNKNOWN
  6. MULTI-VITAMIN [Concomitant]

REACTIONS (4)
  - LEUKOCYTURIA [None]
  - POST PROCEDURAL HAEMORRHAGE [None]
  - RENAL FAILURE ACUTE [None]
  - TUBULOINTERSTITIAL NEPHRITIS [None]
